FAERS Safety Report 9121146 (Version 2)
Quarter: 2013Q1

REPORT INFORMATION
  Report Type: Spontaneous
  Country: US (occurrence: US)
  Receive Date: 20130226
  Receipt Date: 20130306
  Transmission Date: 20140127
  Serious: Yes (Other)
  Sender: FDA-Public Use
  Company Number: US-ROCHE-1195068

PATIENT
  Age: 45 Year
  Sex: Female
  Weight: 63.56 kg

DRUGS (9)
  1. XOLAIR [Suspect]
     Indication: ASTHMA
     Dosage: 1% DOSE, 10%
     Route: 058
     Dates: start: 20060206, end: 20070223
  2. XOLAIR [Suspect]
     Route: 042
     Dates: start: 20070622
  3. ADVAIR [Concomitant]
     Dosage: 500/50 MG
     Route: 050
     Dates: start: 2005
  4. ACIPHEX [Concomitant]
     Route: 048
     Dates: start: 20051118, end: 2010
  5. SINGULAIR [Concomitant]
     Route: 048
     Dates: start: 2005, end: 2011
  6. ALLEGRA [Concomitant]
     Indication: HYPERSENSITIVITY
     Route: 048
     Dates: start: 2005, end: 2011
  7. TIMOPTIC [Concomitant]
  8. ALPHAGAN [Concomitant]
  9. DIAMOX [Concomitant]

REACTIONS (1)
  - Urticaria [Recovered/Resolved]
